FAERS Safety Report 6203344-6 (Version None)
Quarter: 2009Q2

REPORT INFORMATION
  Report Type: 
  Country: None (occurrence: None)
  Receive Date: 20090527
  Receipt Date: 20090514
  Transmission Date: 20091009
  Serious: Yes (Other)
  Sender: FDA-Public Use
  Company Number: SE-ASTRAZENECA-2009SE01915

PATIENT
  Age: 24007 Day
  Sex: Female

DRUGS (6)
  1. TENORMIN [Suspect]
     Route: 048
     Dates: start: 20090427, end: 20090510
  2. ATENOLOL COPYFARM [Concomitant]
     Dates: start: 20090511
  3. SIMVASTATIN [Concomitant]
     Indication: MYOCARDIAL INFARCTION
  4. TROMBYL [Concomitant]
     Indication: MYOCARDIAL INFARCTION
  5. LEVOTHYROXINE SODIUM [Concomitant]
     Indication: MYOCARDIAL INFARCTION
  6. TRAMADOL HCL [Concomitant]
     Indication: MYOCARDIAL INFARCTION
     Dates: start: 20030101

REACTIONS (4)
  - ANGIOEDEMA [None]
  - BLOOD PRESSURE INCREASED [None]
  - DEPRESSED MOOD [None]
  - DIZZINESS [None]
